FAERS Safety Report 9283506 (Version 1)
Quarter: 2013Q2

REPORT INFORMATION
  Report Type: Spontaneous
  Country: IT (occurrence: None)
  Receive Date: 20130506
  Receipt Date: 20130506
  Transmission Date: 20140414
  Serious: Yes (Life-Threatening, Hospitalization, Other)
  Sender: FDA-Public Use
  Company Number: 2013P1005128

PATIENT
  Age: 34 Year
  Sex: Female

DRUGS (4)
  1. KETOROLAC [Suspect]
     Indication: HEADACHE
  2. CABERGOLINE [Suspect]
  3. BUDESONIDE [Concomitant]
  4. FORMOTEROL [Concomitant]

REACTIONS (3)
  - Ventricular arrhythmia [None]
  - Cardiogenic shock [None]
  - Kounis syndrome [None]
